FAERS Safety Report 6936589-8 (Version None)
Quarter: 2010Q3

REPORT INFORMATION
  Report Type: 
  Country: None (occurrence: None)
  Receive Date: 20100823
  Receipt Date: 20100810
  Transmission Date: 20110219
  Serious: Yes (Hospitalization)
  Sender: FDA-Public Use
  Company Number: DE-ROCHE-720072

PATIENT
  Sex: Female

DRUGS (4)
  1. IBANDRONATE SODIUM [Suspect]
     Indication: BREAST CANCER METASTATIC
     Route: 048
     Dates: start: 20080403, end: 20091218
  2. EPIRUBICIN [Suspect]
     Indication: BREAST CANCER METASTATIC
     Route: 042
     Dates: start: 20071115, end: 20071213
  3. PACLITAXEL [Suspect]
     Indication: BREAST CANCER METASTATIC
     Route: 042
     Dates: start: 20071227, end: 20080124
  4. CYCLOPHOSPHAMIDE [Suspect]
     Indication: BREAST CANCER METASTATIC
     Route: 042
     Dates: start: 20080207, end: 20080306

REACTIONS (1)
  - RHABDOMYOLYSIS [None]
